FAERS Safety Report 4928938-7 (Version None)
Quarter: 2006Q1

REPORT INFORMATION
  Report Type: 
  Country: None (occurrence: None)
  Receive Date: 20060301
  Receipt Date: 20060223
  Transmission Date: 20060701
  Serious: Yes (Hospitalization)
  Sender: FDA-Public Use
  Company Number: IT-JNJFOC-20060205729

PATIENT
  Sex: Female

DRUGS (2)
  1. REMICADE [Suspect]
     Indication: CROHN'S DISEASE
     Dosage: 19 DOSES
     Route: 042
  2. METHOTREXATE [Concomitant]
     Indication: CROHN'S DISEASE
     Route: 030

REACTIONS (2)
  - BLINDNESS TRANSIENT [None]
  - OPTIC NEURITIS RETROBULBAR [None]
